FAERS Safety Report 6500072-4 (Version None)
Quarter: 2009Q4

REPORT INFORMATION
  Report Type: 
  Country: None (occurrence: None)
  Receive Date: 20091216
  Receipt Date: 20091207
  Transmission Date: 20100525
  Serious: Yes (Other)
  Sender: FDA-Public Use
  Company Number: US-JNJFOC-20091008244

PATIENT
  Sex: Female
  Weight: 76.66 kg

DRUGS (8)
  1. DURAGESIC-100 [Suspect]
     Indication: FIBROMYALGIA
     Dosage: RANK 2 AND 3 DRUG WAS GIVEN IN COMBINATION BUT RANK 3 DRUG WAS CONTINUE
     Route: 062
  2. DURAGESIC-100 [Suspect]
     Dosage: RANK 2 AND 3 DRUG WAS GIVEN IN COMBINATION BUT RANK 3 DRUG WAS CONTINUE
     Route: 062
  3. DURAGESIC-100 [Suspect]
     Dosage: 100+50
     Route: 062
  4. SANDOZ FENTANYL TRANSDERMAL SYSTEM [Suspect]
     Indication: FIBROMYALGIA
     Dosage: 75+75
     Route: 062
  5. PROVIGIL [Concomitant]
  6. FLUVOXAMINE MALEATE [Concomitant]
  7. SERTRALINE HCL [Concomitant]
  8. SERTRALINE HCL [Concomitant]

REACTIONS (8)
  - DEPRESSION [None]
  - DRUG INEFFECTIVE [None]
  - GASTRIC DISORDER [None]
  - HEPATIC CIRRHOSIS [None]
  - OSTEOPOROSIS [None]
  - SOMNOLENCE [None]
  - THYROID DISORDER [None]
  - VEIN DISORDER [None]
